FAERS Safety Report 6472262-0 (Version None)
Quarter: 2009Q4

REPORT INFORMATION
  Report Type: 
  Country: None (occurrence: None)
  Receive Date: 20091203
  Receipt Date: 20091123
  Transmission Date: 20100525
  Serious: Yes (Hospitalization, Other)
  Sender: FDA-Public Use
  Company Number: FR-ABBOTT-09P-056-0610324-00

PATIENT
  Sex: Male

DRUGS (8)
  1. ZECLAR [Suspect]
     Indication: BRONCHOPNEUMOPATHY
     Route: 048
     Dates: start: 20091023, end: 20091026
  2. COLCHIMAX [Interacting]
     Indication: CHONDROCALCINOSIS
     Route: 048
     Dates: start: 20071215, end: 20091029
  3. TAVANIC [Concomitant]
     Indication: BRONCHOPNEUMOPATHY
     Route: 048
     Dates: start: 20091026, end: 20091029
  4. LASILIX [Concomitant]
     Indication: DRUG USE FOR UNKNOWN INDICATION
     Route: 048
     Dates: start: 20091026, end: 20091028
  5. VASTEN [Concomitant]
     Indication: HYPERCHOLESTEROLAEMIA
     Route: 048
     Dates: end: 20091030
  6. KARDEGIC [Concomitant]
     Indication: DRUG USE FOR UNKNOWN INDICATION
     Dosage: 75MG DAILY
     Route: 048
  7. SOTALEX [Concomitant]
     Indication: DRUG USE FOR UNKNOWN INDICATION
     Route: 048
  8. IMMUGRIP [Concomitant]
     Indication: INFLUENZA
     Dates: start: 20091022

REACTIONS (11)
  - AGRANULOCYTOSIS [None]
  - ANAEMIA [None]
  - APHTHOUS STOMATITIS [None]
  - BLOOD CREATINE PHOSPHOKINASE INCREASED [None]
  - CYTOLYTIC HEPATITIS [None]
  - DECREASED APPETITE [None]
  - DRUG INTERACTION [None]
  - DYSPNOEA [None]
  - INFLAMMATION [None]
  - RENAL FAILURE [None]
  - THROMBOCYTOPENIA [None]
